FAERS Safety Report 8587840 (Version 4)
Quarter: 2014Q2

REPORT INFORMATION
  Report Type: Spontaneous
  Country: US (occurrence: US)
  Receive Date: 20120531
  Receipt Date: 20140423
  Transmission Date: 20141212
  Serious: Yes (Hospitalization, Other)
  Sender: FDA-Public Use
  Company Number: US-ASTRAZENECA-2012SE33550

PATIENT
  Age: 733 Month
  Sex: Male

DRUGS (12)
  1. NEXIUM [Suspect]
     Indication: GASTROOESOPHAGEAL REFLUX DISEASE
     Route: 048
     Dates: start: 20031209, end: 20101025
  2. NEXIUM [Suspect]
     Indication: GASTROOESOPHAGEAL REFLUX DISEASE
     Route: 048
     Dates: start: 2006, end: 2010
  3. NEXIUM [Suspect]
     Indication: GASTROOESOPHAGEAL REFLUX DISEASE
     Route: 048
     Dates: start: 20061030
  4. NEXIUM [Suspect]
     Indication: GASTROOESOPHAGEAL REFLUX DISEASE
     Route: 048
     Dates: start: 2003
  5. PRILOSEC [Suspect]
     Indication: GASTROOESOPHAGEAL REFLUX DISEASE
     Route: 048
     Dates: start: 20000329
  6. PRILOSEC [Suspect]
     Indication: GASTROOESOPHAGEAL REFLUX DISEASE
     Route: 048
     Dates: start: 2003
  7. WELCHOL [Concomitant]
     Indication: BLOOD CHOLESTEROL ABNORMAL
     Dates: start: 20061110
  8. ZANTAC [Concomitant]
     Dates: start: 19910511, end: 1999
  9. ALKA SELTZER [Concomitant]
  10. ROLAIDS [Concomitant]
  11. GAS X [Concomitant]
  12. RANITIDINE [Concomitant]
     Indication: GASTROOESOPHAGEAL REFLUX DISEASE

REACTIONS (12)
  - Hip fracture [Unknown]
  - Femur fracture [Unknown]
  - Gastric disorder [Unknown]
  - Osteoporosis [Unknown]
  - Knee deformity [Unknown]
  - Vitamin D deficiency [Unknown]
  - Osteopenia [Unknown]
  - Calcium deficiency [Unknown]
  - Fracture [Unknown]
  - Osteoarthritis [Unknown]
  - Intervertebral disc space narrowing [Unknown]
  - Intervertebral disc degeneration [Unknown]
